FAERS Safety Report 8281261-8 (Version None)
Quarter: 2012Q2

REPORT INFORMATION
  Report Type: 
  Country: None (occurrence: None)
  Receive Date: 20120413
  Receipt Date: 20120404
  Transmission Date: 20120825
  Serious: Yes (Other)
  Sender: FDA-Public Use
  Company Number: US-AMGEN-USASP2012021592

PATIENT
  Age: 59 Year
  Sex: Female

DRUGS (1)
  1. ENBREL [Suspect]
     Indication: RHEUMATOID ARTHRITIS
     Dosage: 50 MG, QWK
     Dates: start: 20040801

REACTIONS (5)
  - CHOLECYSTECTOMY [None]
  - RASH MACULAR [None]
  - SPINAL OPERATION [None]
  - INTERVERTEBRAL DISC DEGENERATION [None]
  - HAEMORRHAGE [None]
